FAERS Safety Report 16773455 (Version 1)
Quarter: 2019Q3

REPORT INFORMATION
  Report Type: Spontaneous
  Country: JP (occurrence: JP)
  Receive Date: 20190904
  Receipt Date: 20190904
  Transmission Date: 20191005
  Serious: Yes (Death, Life-Threatening, Other)
  Sender: FDA-Public Use
  Company Number: JP-BRACCO-2019JP03729

PATIENT
  Age: 69 Year
  Sex: Female

DRUGS (5)
  1. IOPAMIRON [Suspect]
     Active Substance: IOPAMIDOL
     Indication: COMPUTERISED TOMOGRAM THORAX
     Dosage: 100 ML, ONCE
     Route: 040
     Dates: start: 20190725, end: 20190725
  2. CILOSTAZOL. [Concomitant]
     Active Substance: CILOSTAZOL
  3. WARFARIN [Concomitant]
     Active Substance: WARFARIN
     Dosage: DAILY DOSE 1.5 MG
  4. BAYASPIRIN 100 MG [Concomitant]
     Active Substance: ASPIRIN
     Dosage: DAILY DOSE 100 MG
  5. BLOPRESS [Concomitant]
     Active Substance: CANDESARTAN CILEXETIL
     Dosage: DAILY DOSE 8 MG

REACTIONS (2)
  - Cardiac failure acute [Fatal]
  - Anaphylactic shock [Fatal]

NARRATIVE: CASE EVENT DATE: 20190725
